FAERS Safety Report 25091915 (Version 1)
Quarter: 2025Q1

REPORT INFORMATION
  Report Type: Report from Study
  Country: CA (occurrence: CA)
  Receive Date: 20250318
  Receipt Date: 20250318
  Transmission Date: 20250409
  Serious: Yes (Hospitalization)
  Sender: ABBVIE
  Company Number: CA-ABBVIE-6177007

PATIENT
  Age: 68 Year
  Sex: Male

DRUGS (2)
  1. RINVOQ [Suspect]
     Active Substance: UPADACITINIB
     Indication: Rheumatoid arthritis
     Dosage: STRENGTH: 15 MG
     Route: 048
  2. METHOTREXATE [Concomitant]
     Active Substance: METHOTREXATE
     Indication: Product used for unknown indication

REACTIONS (5)
  - Cholecystitis infective [Recovering/Resolving]
  - Discoloured vomit [Unknown]
  - Poisoning [Recovering/Resolving]
  - Wound infection fungal [Recovering/Resolving]
  - Wound infection bacterial [Recovering/Resolving]

NARRATIVE: CASE EVENT DATE: 20240101
